FAERS Safety Report 4640728-1 (Version None)
Quarter: 2005Q2

REPORT INFORMATION
  Report Type: 
  Country: None (occurrence: None)
  Receive Date: 20050419
  Receipt Date: 20050414
  Transmission Date: 20051028
  Serious: Yes (Other)
  Sender: FDA-Public Use
  Company Number: GRWYE586514APR05

PATIENT
  Age: 21 Year
  Sex: Female

DRUGS (3)
  1. EFFEXOR XR [Suspect]
     Indication: MAJOR DEPRESSION
     Dosage: 75 MG 1X PER 1 DAY; ORAL
     Route: 048
     Dates: start: 20050411
  2. TEGRETOL [Concomitant]
  3. SOLIAN (AMISULPRIDE) [Concomitant]

REACTIONS (3)
  - AGGRESSION [None]
  - SUICIDAL IDEATION [None]
  - SUICIDE ATTEMPT [None]
